FAERS Safety Report 22243165 (Version 1)
Quarter: 2023Q2

REPORT INFORMATION
  Report Type: Spontaneous
  Country: FR (occurrence: FR)
  Receive Date: 20230424
  Receipt Date: 20230424
  Transmission Date: 20230721
  Serious: Yes (Life-Threatening)
  Sender: FDA-Public Use
  Company Number: FR-AFSSAPS-LY2023000353

PATIENT
  Age: 37 Year
  Sex: Male
  Weight: 61 kg

DRUGS (7)
  1. GEMCITABINE [Suspect]
     Active Substance: GEMCITABINE
     Indication: Angiocentric lymphoma
     Dosage: 1750 MILLIGRAM 1DOSE/1CYCLIC
     Route: 040
     Dates: start: 20230210, end: 20230210
  2. PEGASPARGASE [Suspect]
     Active Substance: PEGASPARGASE
     Indication: Angiocentric lymphoma
     Dosage: 3450 INTERNATIONAL UNIT 1DOSE/1CYCLIC
     Route: 040
     Dates: start: 20230211, end: 20230211
  3. DEXAMETHASONE ACETATE [Concomitant]
     Active Substance: DEXAMETHASONE ACETATE
     Indication: Chemotherapy side effect prophylaxis
     Dosage: UNK
     Route: 065
  4. APREPITANT [Concomitant]
     Active Substance: APREPITANT
     Indication: Chemotherapy side effect prophylaxis
     Dosage: 125 MILLIGRAM, DAILY DAY 1
     Route: 048
  5. APREPITANT [Concomitant]
     Active Substance: APREPITANT
     Dosage: 80 MILLIGRAM, DAILY DAY 2 AND 3
     Route: 048
  6. LOVENOX [Concomitant]
     Active Substance: ENOXAPARIN SODIUM
     Indication: Product used for unknown indication
     Dosage: UNK
     Route: 065
  7. ONDANSETRON [Concomitant]
     Active Substance: ONDANSETRON
     Indication: Product used for unknown indication
     Dosage: 8 MILLIGRAM, DAILY
     Route: 040

REACTIONS (1)
  - Anaphylactic shock [Recovered/Resolved]

NARRATIVE: CASE EVENT DATE: 20230211
